FAERS Safety Report 15136699 (Version 1)
Quarter: 2018Q3

REPORT INFORMATION
  Report Type: Report from Study
  Country: DE (occurrence: DE)
  Receive Date: 20180712
  Receipt Date: 20180712
  Transmission Date: 20181010
  Serious: Yes (Hospitalization, Other)
  Sender: FDA-Public Use
  Company Number: DE-MYLANLABS-2018M1049531

PATIENT
  Age: 66 Year
  Sex: Female

DRUGS (2)
  1. ABATACEPT [Suspect]
     Active Substance: ABATACEPT
     Indication: RHEUMATOID ARTHRITIS
     Dosage: 125 MG, QWK
     Route: 058
  2. METHOTREXATE. [Suspect]
     Active Substance: METHOTREXATE
     Indication: RHEUMATOID ARTHRITIS
     Dosage: 10 MG, QWK
     Route: 065

REACTIONS (8)
  - Spinal fusion surgery [Not Recovered/Not Resolved]
  - Pain [Not Recovered/Not Resolved]
  - Monoclonal gammopathy [Unknown]
  - Hyperkeratosis [Unknown]
  - Sciatica [Unknown]
  - Osteoarthritis [Unknown]
  - Spinal operation [Not Recovered/Not Resolved]
  - Spinal laminectomy [Not Recovered/Not Resolved]

NARRATIVE: CASE EVENT DATE: 20160120
